FAERS Safety Report 19873760 (Version 1)
Quarter: 2021Q3

REPORT INFORMATION
  Report Type: Spontaneous
  Country: BR (occurrence: BR)
  Receive Date: 20210923
  Receipt Date: 20210923
  Transmission Date: 20211014
  Serious: Yes (Other)
  Sender: FDA-Public Use
  Company Number: BR-GLAXOSMITHKLINE-BR2021AMR140433

PATIENT
  Sex: Male

DRUGS (2)
  1. NUCALA [Suspect]
     Active Substance: MEPOLIZUMAB
     Dosage: 100 MG/ML
     Dates: start: 20200922
  2. NUCALA [Suspect]
     Active Substance: MEPOLIZUMAB
     Indication: ASTHMA
     Dosage: 100 MG, Z, EVERY 4 WEEKS
     Dates: start: 20200922

REACTIONS (5)
  - Fatigue [Not Recovered/Not Resolved]
  - Condition aggravated [Unknown]
  - Asthmatic crisis [Unknown]
  - Therapeutic product effect incomplete [Unknown]
  - Impaired quality of life [Not Recovered/Not Resolved]
